FAERS Safety Report 11724120 (Version 1)
Quarter: 2015Q4

REPORT INFORMATION
  Report Type: Spontaneous
  Country: US (occurrence: US)
  Receive Date: 20151111
  Receipt Date: 20151111
  Transmission Date: 20160304
  Serious: No
  Sender: FDA-Public Use
  Company Number: US-G+W LABORATORIES-1044078

PATIENT
  Age: 47 Year
  Sex: Male

DRUGS (3)
  1. CLINDAMYCIN HYDROCHLORIDE. [Suspect]
     Active Substance: CLINDAMYCIN HYDROCHLORIDE
     Indication: STAPHYLOCOCCAL INFECTION
     Route: 048
     Dates: start: 201508, end: 201509
  2. BERAPROST SODIUM/PLACEBO [Concomitant]
     Active Substance: BERAPROST SODIUM
     Dates: start: 201411
  3. TYVASO [Concomitant]
     Active Substance: TREPROSTINIL
     Route: 055

REACTIONS (1)
  - Drug hypersensitivity [Recovered/Resolved]

NARRATIVE: CASE EVENT DATE: 201509
